FAERS Safety Report 8573801-6 (Version None)
Quarter: 2012Q3

REPORT INFORMATION
  Report Type: 
  Country: None (occurrence: None)
  Receive Date: 20120806
  Receipt Date: 20120727
  Transmission Date: 20120928
  Serious: Yes (Hospitalization, Other)
  Sender: FDA-Public Use
  Company Number: US-009507513-2009-198050-NL

PATIENT

DRUGS (3)
  1. FLEXERIL [Concomitant]
     Indication: PRODUCT USED FOR UNKNOWN INDICATION
     Dates: start: 20070401
  2. SYNTHROID [Concomitant]
     Indication: HYPOTHYROIDISM
     Dosage: 137 ?G, UNK
  3. NUVARING [Suspect]
     Indication: CONTRACEPTION
     Dosage: CONTINUING: NO
     Route: 067
     Dates: start: 20070314, end: 20071015

REACTIONS (18)
  - THROMBOSIS [None]
  - HEADACHE [None]
  - OBSESSIVE-COMPULSIVE DISORDER [None]
  - FATIGUE [None]
  - SARCOIDOSIS [None]
  - BACK PAIN [None]
  - SOMNOLENCE [None]
  - WEIGHT FLUCTUATION [None]
  - MUSCLE STRAIN [None]
  - BRONCHITIS [None]
  - VULVOVAGINAL CANDIDIASIS [None]
  - SLEEP PARALYSIS [None]
  - PULMONARY EMBOLISM [None]
  - ARTHRALGIA [None]
  - CHILLS [None]
  - TEMPERATURE INTOLERANCE [None]
  - DEPRESSION [None]
  - DEEP VEIN THROMBOSIS [None]
